FAERS Safety Report 17483899 (Version 2)
Quarter: 2020Q1

REPORT INFORMATION
  Report Type: Report from Study
  Country: SE (occurrence: SE)
  Receive Date: 20200302
  Receipt Date: 20200304
  Transmission Date: 20200409
  Serious: Yes (Other)
  Sender: FDA-Public Use
  Company Number: SE-ROCHE-2559335

PATIENT

DRUGS (1)
  1. RITUXIMAB. [Suspect]
     Active Substance: RITUXIMAB
     Indication: MULTIPLE SCLEROSIS
     Route: 065

REACTIONS (23)
  - Off label use [Unknown]
  - Malignant melanoma [Unknown]
  - Brain neoplasm malignant [Unknown]
  - Hepatic cancer [Unknown]
  - Vaginal cancer [Unknown]
  - Lung neoplasm malignant [Unknown]
  - Basal cell carcinoma [Unknown]
  - Intentional product use issue [Unknown]
  - Bladder cancer [Unknown]
  - Cholangiocarcinoma [Unknown]
  - Breast cancer [Unknown]
  - Endocrine neoplasm malignant [Unknown]
  - Skin cancer [Unknown]
  - Bronchial carcinoma [Unknown]
  - Prostate cancer [Unknown]
  - Anal cancer [Unknown]
  - Renal cancer [Unknown]
  - Pancreatic carcinoma [Unknown]
  - Leukaemia [Unknown]
  - Gastrointestinal carcinoma [Unknown]
  - Colon cancer [Unknown]
  - Lymphoma [Unknown]
  - Cervical dysplasia [Unknown]
